FAERS Safety Report 9213343 (Version 2)
Quarter: 2013Q2

REPORT INFORMATION
  Report Type: Spontaneous
  Country: BR (occurrence: BR)
  Receive Date: 20130405
  Receipt Date: 20130612
  Transmission Date: 20140414
  Serious: Yes (Other)
  Sender: FDA-Public Use
  Company Number: PHHY2013BR032797

PATIENT
  Age: 66 Year
  Sex: Female

DRUGS (11)
  1. APRESOLIN [Suspect]
     Indication: HYPERTENSION
     Dosage: 50 MG, TID (MORNING, AFTERNOON + NIGHT)
     Route: 048
     Dates: end: 201303
  2. DIOVAN HCT [Suspect]
     Indication: HYPERTENSION
     Dosage: 2 DF (120 MG VALS AND 12.5MG HCT), DAILY
     Route: 048
  3. NITRENDIPINE [Suspect]
     Indication: HYPERTENSION
     Dosage: 2 DF(10MG), DAILY
     Route: 048
     Dates: start: 201304
  4. NITRENDIPINE [Suspect]
     Dosage: 1 DF(10MG), DAILY
     Route: 048
  5. ALPRAZOLAM [Concomitant]
     Indication: EMOTIONAL DISORDER
     Dosage: 0.5 DF (1G), BID
     Route: 048
  6. ALPRAZOLAM [Concomitant]
     Indication: BLOOD PRESSURE INCREASED
  7. ACETYLSALICYLIC ACID [Concomitant]
     Indication: BLOOD PRESSURE
     Dosage: 2 DF, DAILY
  8. DILACOR                                 /BRA/ [Concomitant]
     Indication: ARRHYTHMIA
     Dosage: 120 MG, DAILY
     Route: 048
  9. FLUOXETINE [Concomitant]
     Indication: DEPRESSION
     Dosage: 40 MG, DAILY
     Route: 048
  10. ATENSINA [Concomitant]
     Indication: HYPERTENSION
     Dosage: 3 DF(0.200MG), DAILY
     Route: 048
  11. DAFLON (DIOSMIN) [Concomitant]
     Indication: CARDIOVASCULAR DISORDER
     Dosage: 2 DF(500MG), DAILY
     Route: 048

REACTIONS (11)
  - Bone cyst [Recovered/Resolved]
  - Arthralgia [Unknown]
  - Gait disturbance [Unknown]
  - Arrhythmia [Recovered/Resolved]
  - Malaise [Recovered/Resolved]
  - Cholelithiasis [Recovered/Resolved]
  - Pancreatitis [Recovered/Resolved]
  - Pain [Recovered/Resolved]
  - Blood pressure increased [Not Recovered/Not Resolved]
  - Peripheral vascular disorder [Not Recovered/Not Resolved]
  - Pain in extremity [Not Recovered/Not Resolved]
